FAERS Safety Report 8980752 (Version 1)
Quarter: 2012Q4

REPORT INFORMATION
  Report Type: 
  Country: TR (occurrence: TR)
  Receive Date: 20121221
  Receipt Date: 20121221
  Transmission Date: 20130627
  Serious: Yes (Hospitalization)
  Sender: FDA-Public Use
  Company Number: TR-PFIZER INC-2012316697

PATIENT
  Age: 62 Year
  Sex: Male

DRUGS (2)
  1. FLUOROURACIL [Suspect]
     Indication: GASTRIC CANCER
     Dosage: UNK
  2. FOLINIC ACID [Suspect]
     Indication: GASTRIC CANCER
     Dosage: UNK

REACTIONS (5)
  - Hiccups [Recovered/Resolved]
  - Fatigue [Unknown]
  - Sleep disorder [Recovered/Resolved]
  - Nausea [Unknown]
  - Emotional distress [Unknown]
